FAERS Safety Report 4766831-3 (Version None)
Quarter: 2005Q3

REPORT INFORMATION
  Report Type: 
  Country: None (occurrence: None)
  Receive Date: 20050912
  Receipt Date: 20050829
  Transmission Date: 20060218
  Serious: Yes (Other)
  Sender: FDA-Public Use
  Company Number: 2005121247

PATIENT
  Age: 44 Year
  Sex: Female
  Weight: 204.1187 kg

DRUGS (3)
  1. ZOLOFT [Suspect]
     Indication: MOOD SWINGS
     Dosage: 200 MG, 1 IN 1 D, ORAL
     Route: 048
     Dates: start: 19990101
  2. TRAZODONE [Concomitant]
  3. LASIX [Concomitant]

REACTIONS (3)
  - DISEASE RECURRENCE [None]
  - MOOD SWINGS [None]
  - TREATMENT NONCOMPLIANCE [None]
